FAERS Safety Report 6700194-9 (Version None)
Quarter: 2010Q2

REPORT INFORMATION
  Report Type: 
  Country: None (occurrence: None)
  Receive Date: 20100428
  Receipt Date: 20100420
  Transmission Date: 20101027
  Serious: Yes (Other)
  Sender: FDA-Public Use
  Company Number: US-ASTRAZENECA-2010SE17732

PATIENT
  Sex: Female

DRUGS (13)
  1. NEXIUM [Suspect]
     Indication: GASTROOESOPHAGEAL REFLUX DISEASE
     Route: 048
  2. NEXIUM [Suspect]
     Indication: BARRETT'S OESOPHAGUS
     Route: 048
  3. FUROSEMIDE [Concomitant]
  4. AMARYL [Concomitant]
  5. SYNTHROID [Concomitant]
  6. ASPIRIN [Concomitant]
  7. MULTI-VITAMIN [Concomitant]
  8. MIACALCIN [Concomitant]
  9. CITRACAL [Concomitant]
  10. CALCIUM W/D [Concomitant]
  11. AVAPRO [Concomitant]
  12. REGLAN [Concomitant]
  13. MECLIZINE [Concomitant]

REACTIONS (2)
  - BLADDER CANCER [None]
  - BREAST CANCER [None]
